FAERS Safety Report 5514441-2 (Version None)
Quarter: 2007Q4

REPORT INFORMATION
  Report Type: 
  Country: None (occurrence: None)
  Receive Date: 20071113
  Receipt Date: 20070521
  Transmission Date: 20080405
  Serious: No
  Sender: FDA-Public Use
  Company Number: A0652216A

PATIENT
  Sex: Female

DRUGS (2)
  1. CARVEDILOL [Suspect]
     Indication: DRUG USE FOR UNKNOWN INDICATION
     Dosage: 25MG TWICE PER DAY
     Route: 048
  2. COREG CR [Suspect]
     Indication: DRUG USE FOR UNKNOWN INDICATION
     Dosage: 20MG PER DAY
     Route: 048
     Dates: end: 20070501

REACTIONS (2)
  - HEADACHE [None]
  - PALPITATIONS [None]
